FAERS Safety Report 8904286 (Version 2)
Quarter: 2012Q4

REPORT INFORMATION
  Report Type: Report from Study
  Country: US (occurrence: US)
  Receive Date: 20121112
  Receipt Date: 20121116
  Transmission Date: 20130627
  Serious: Yes (Other)
  Sender: FDA-Public Use
  Company Number: US-US-EMD SERONO, INC.-7172614

PATIENT
  Sex: Female

DRUGS (1)
  1. REBIF [Suspect]
     Indication: MULTIPLE SCLEROSIS
     Route: 058
     Dates: start: 201205, end: 201207

REACTIONS (10)
  - Multiple sclerosis relapse [Recovered/Resolved]
  - Cough [Unknown]
  - Injection site scar [Unknown]
  - Paraesthesia [Not Recovered/Not Resolved]
  - Muscle spasms [Unknown]
  - Injection site pain [Unknown]
  - Injection site erythema [Unknown]
  - Injection site mass [Unknown]
  - Influenza like illness [Unknown]
  - Fatigue [Unknown]
